FAERS Safety Report 7089951-X (Version None)
Quarter: 2010Q4

REPORT INFORMATION
  Report Type: 
  Country: None (occurrence: None)
  Receive Date: 20101108
  Receipt Date: 20101102
  Transmission Date: 20110411
  Serious: Yes (Death, Hospitalization)
  Sender: FDA-Public Use
  Company Number: US-AMGEN-US337988

PATIENT

DRUGS (13)
  1. NPLATE [Suspect]
     Indication: IDIOPATHIC THROMBOCYTOPENIC PURPURA
     Dosage: 1 A?G/KG, UNK
     Route: 058
     Dates: start: 20081117, end: 20081117
  2. NPLATE [Suspect]
     Dates: start: 20081117, end: 20081117
  3. CORTICOSTEROID NOS [Concomitant]
     Dosage: UNK UNK, UNK
     Route: 042
     Dates: start: 20081117
  4. RITUXIMAB [Concomitant]
     Dosage: UNK UNK, UNK
     Route: 065
  5. PROCRIT [Concomitant]
     Dosage: UNK UNK, UNK
     Dates: start: 20081101
  6. CEFTAZIDIME [Concomitant]
     Dosage: UNK UNK, UNK
     Dates: start: 20081101, end: 20081112
  7. INDOMETHACIN [Concomitant]
     Dosage: UNK UNK, UNK
     Dates: start: 20081101
  8. ESOMEPRAZOLE MAGNESIUM [Concomitant]
     Dosage: UNK UNK, UNK
     Dates: start: 20081101
  9. VANCOMYCIN [Concomitant]
     Dosage: UNK UNK, UNK
     Dates: start: 20081107
  10. DEXAMETHASONE [Concomitant]
     Dosage: UNK UNK, UNK
     Route: 042
  11. AZITHROMYCIN [Concomitant]
     Dosage: UNK UNK, UNK
     Dates: end: 20081112
  12. NOREPINEPHRINE BITARTRATE [Concomitant]
     Dosage: UNK UNK, UNK
     Dates: start: 20081117
  13. HUMAN RED BLOOD CELLS [Concomitant]
     Dosage: UNK UNK, UNK
     Dates: start: 20081117

REACTIONS (6)
  - ABDOMINAL PAIN [None]
  - ANAEMIA [None]
  - CYANOSIS [None]
  - DEPRESSION [None]
  - LUNG NEOPLASM MALIGNANT [None]
  - SEPSIS [None]
